FAERS Safety Report 4368286-X (Version None)
Quarter: 2004Q2

REPORT INFORMATION
  Report Type: 
  Country: None (occurrence: None)
  Receive Date: 20040525
  Receipt Date: 20040512
  Transmission Date: 20050107
  Serious: Yes (Disabling)
  Sender: FDA-Public Use
  Company Number: 2004-00279FE

PATIENT
  Age: 64 Year
  Sex: Male

DRUGS (5)
  1. MESALAZINE (MESALAZINE) [Suspect]
     Indication: COLITIS ULCERATIVE
     Dosage: 1 G PER RECTAL
     Route: 054
     Dates: start: 20010101
  2. COLAZIDE (COLAZIDE) (BALSALAZIDE SODIUM) [Suspect]
     Indication: COLITIS ULCERATIVE
     Dosage: 2250 MG ORALLY
     Route: 048
     Dates: start: 20010101, end: 20040428
  3. DIPHENOXYLATE W/ATROPINE SULFATE [Concomitant]
  4. ATORVASTATIN CALCIUM [Concomitant]
  5. PREDNISOLONE [Concomitant]

REACTIONS (1)
  - ALVEOLITIS FIBROSING [None]
